FAERS Safety Report 6535422-6 (Version None)
Quarter: 2009Q4

REPORT INFORMATION
  Report Type: 
  Country: None (occurrence: None)
  Receive Date: 20091228
  Receipt Date: 20090422
  Transmission Date: 20100525
  Serious: Yes (Life-Threatening, Hospitalization)
  Sender: FDA-Public Use
  Company Number: US-002796

PATIENT
  Age: 79 Year
  Sex: Male

DRUGS (2)
  1. MULTIHANCE [Suspect]
     Indication: INTERMITTENT CLAUDICATION
     Dosage: 25ML INTRAVENOUS
     Route: 042
     Dates: start: 20090422, end: 20090422
  2. MULTIHANCE [Suspect]

REACTIONS (1)
  - ANAPHYLACTIC SHOCK [None]
